FAERS Safety Report 8091719-2 (Version None)
Quarter: 2012Q1

REPORT INFORMATION
  Report Type: 
  Country: None (occurrence: None)
  Receive Date: 20120131
  Receipt Date: 20120130
  Transmission Date: 20120608
  Serious: Yes (Death, Hospitalization, Other)
  Sender: FDA-Public Use
  Company Number: KR-ABBOTT-12P-090-0889541-00

PATIENT
  Age: 37 Year
  Sex: Male
  Weight: 52 kg

DRUGS (6)
  1. KALETRA [Suspect]
     Indication: HIV INFECTION
     Dates: start: 20110210, end: 20110704
  2. VALCYTE [Concomitant]
     Indication: CYTOMEGALOVIRUS INFECTION
     Route: 048
     Dates: start: 20110113, end: 20110609
  3. SINIL CIMETIDINE [Concomitant]
     Indication: PROPHYLAXIS
     Dosage: 200MG/2ML
     Route: 042
     Dates: start: 20110215, end: 20110702
  4. 3TC/AZT [Concomitant]
     Indication: ANTIRETROVIRAL THERAPY
     Dates: start: 20110210, end: 20110704
  5. GLAMIN [Concomitant]
     Indication: MEDICAL DIET
     Route: 042
     Dates: start: 20110215, end: 20110702
  6. SINIL CIMETIDINE [Concomitant]
     Indication: GASTROINTESTINAL DISORDER

REACTIONS (6)
  - SEPTIC SHOCK [None]
  - PYREXIA [None]
  - ENCEPHALOPATHY [None]
  - DEVICE RELATED INFECTION [None]
  - PROGRESSIVE MULTIFOCAL LEUKOENCEPHALOPATHY [None]
  - PNEUMONIA [None]
